FAERS Safety Report 6220459-7 (Version None)
Quarter: 2009Q2

REPORT INFORMATION
  Report Type: 
  Country: None (occurrence: None)
  Receive Date: 20090610
  Receipt Date: 20090602
  Transmission Date: 20091009
  Serious: Yes (Other)
  Sender: FDA-Public Use
  Company Number: US-JNJFOC-20090403676

PATIENT
  Sex: Female

DRUGS (9)
  1. FENTANYL TRANSDERMAL SYSTEM [Suspect]
     Route: 062
  2. FENTANYL TRANSDERMAL SYSTEM [Suspect]
     Route: 062
  3. FENTANYL TRANSDERMAL SYSTEM [Suspect]
     Indication: PAIN
     Route: 062
  4. CAPTOPRIL [Concomitant]
     Indication: DRUG USE FOR UNKNOWN INDICATION
     Route: 048
  5. GABAPENTIN [Concomitant]
     Indication: DRUG USE FOR UNKNOWN INDICATION
     Route: 048
  6. ROBAXIN [Concomitant]
     Indication: NECK PAIN
     Route: 048
  7. QUINIDINE SULFATE [Concomitant]
     Indication: DRUG USE FOR UNKNOWN INDICATION
     Route: 048
  8. FOSAMAX [Concomitant]
     Indication: OSTEOPOROSIS
     Route: 048
  9. LORTAB [Concomitant]
     Indication: PAIN
     Dosage: 5/500 MG
     Route: 048

REACTIONS (6)
  - AMNESIA [None]
  - EYELID FUNCTION DISORDER [None]
  - GAIT DISTURBANCE [None]
  - HYPERSOMNIA [None]
  - OVERDOSE [None]
  - UNRESPONSIVE TO STIMULI [None]
